FAERS Safety Report 10856161 (Version 2)
Quarter: 2015Q3

REPORT INFORMATION
  Report Type: Spontaneous
  Country: DK (occurrence: CA)
  Receive Date: 20150223
  Receipt Date: 20150806
  Transmission Date: 20151125
  Serious: Yes (Death)
  Sender: FDA-Public Use
  Company Number: CA-FRI-1000073823

PATIENT
  Age: 48 Year
  Sex: Male

DRUGS (4)
  1. SENNA PLUS [Concomitant]
     Active Substance: DOCUSATE SODIUM\SENNOSIDES\SENNOSIDES A AND B
     Dosage: 8.6 MG/50 MG
     Route: 048
  2. ROSUVASTATIN [Concomitant]
     Active Substance: ROSUVASTATIN
     Dosage: 10 MG
     Route: 048
  3. ESCITALOPRAM [Suspect]
     Active Substance: ESCITALOPRAM OXALATE
     Indication: ANXIETY
     Dosage: OVERDOSE: DOSE UNKNOWN
     Route: 065
     Dates: start: 20100301, end: 2014
  4. ZOPICLONE [Suspect]
     Active Substance: ZOPICLONE
     Indication: SLEEP DISORDER
     Dosage: OVERDOSE: DOSE UNKNOWN
     Route: 065

REACTIONS (10)
  - Suicidal ideation [Fatal]
  - Mood swings [Fatal]
  - Depression [Fatal]
  - Hallucination, visual [Fatal]
  - Abnormal behaviour [Fatal]
  - Hyperhidrosis [Fatal]
  - Intentional overdose [Fatal]
  - Musculoskeletal chest pain [Fatal]
  - Chest pain [Fatal]
  - Completed suicide [Fatal]

NARRATIVE: CASE EVENT DATE: 2014
